FAERS Safety Report 9364884 (Version 2)
Quarter: 2014Q2

REPORT INFORMATION
  Report Type: Report from Study
  Country: CA (occurrence: CA)
  Receive Date: 20130624
  Receipt Date: 20140516
  Transmission Date: 20141212
  Serious: Yes (Other)
  Sender: FDA-Public Use
  Company Number: CA-GLAXOSMITHKLINE-B0789374B

PATIENT
  Age: 62 Year
  Sex: Male

DRUGS (1)
  1. RETIGABINE [Suspect]
     Indication: PARTIAL SEIZURES
     Dosage: 900MG PER DAY
     Route: 048
     Dates: start: 20061228

REACTIONS (1)
  - Retinal pigmentation [Not Recovered/Not Resolved]
